FAERS Safety Report 6128993-5 (Version None)
Quarter: 2009Q1

REPORT INFORMATION
  Report Type: 
  Country: None (occurrence: None)
  Receive Date: 20090324
  Receipt Date: 20090312
  Transmission Date: 20090719
  Serious: Yes (Hospitalization)
  Sender: FDA-Public Use
  Company Number: PHHY2009FR09196

PATIENT
  Sex: Female

DRUGS (15)
  1. NISISCO [Suspect]
     Dosage: UNK
     Route: 048
     Dates: end: 20080813
  2. SERESTA [Suspect]
     Dosage: UNK
     Route: 048
     Dates: end: 20080813
  3. LYRICA [Suspect]
     Dosage: UNK
     Route: 048
     Dates: end: 20080813
  4. ANXYREX [Suspect]
  5. LOMEXIN [Concomitant]
  6. KETODERM [Concomitant]
  7. SPASFON [Concomitant]
  8. VITAMIN-MINERAL COMPOUND TAB [Concomitant]
  9. LUBENTYL [Concomitant]
  10. FORLAX [Concomitant]
  11. NOOTROPYL [Concomitant]
  12. MELAXOSE [Concomitant]
  13. RANITIDINE [Concomitant]
  14. PARAPSYLLIUM [Concomitant]
  15. VOGALENE [Concomitant]

REACTIONS (7)
  - AMNESIA [None]
  - ARTHRALGIA [None]
  - ATRIAL FIBRILLATION [None]
  - FALL [None]
  - HEART SOUNDS ABNORMAL [None]
  - MINI MENTAL STATUS EXAMINATION [None]
  - OSTEOARTHRITIS [None]
